FAERS Safety Report 5412946-6 (Version None)
Quarter: 2007Q3

REPORT INFORMATION
  Report Type: 
  Country: None (occurrence: None)
  Receive Date: 20070813
  Receipt Date: 20070806
  Transmission Date: 20080115
  Serious: Yes (Other)
  Sender: FDA-Public Use
  Company Number: JP-MERCK-0708USA00610

PATIENT
  Age: 52 Year
  Sex: Male

DRUGS (15)
  1. PEPCID RPD [Suspect]
     Indication: PROPHYLAXIS AGAINST GASTROINTESTINAL ULCER
     Route: 048
     Dates: start: 20070209, end: 20070709
  2. LIPITOR [Suspect]
     Indication: HYPERLIPIDAEMIA
     Route: 048
     Dates: start: 20070309, end: 20070314
  3. ALLOPURINOL [Concomitant]
     Indication: HYPERURICAEMIA
     Route: 048
     Dates: start: 20070209, end: 20070318
  4. LOXONIN [Concomitant]
     Indication: MYALGIA
     Route: 048
     Dates: start: 20070209, end: 20070318
  5. LOXONIN [Concomitant]
     Route: 048
     Dates: start: 20070319, end: 20070611
  6. LOXONIN [Concomitant]
     Indication: ARTHRALGIA
     Route: 048
     Dates: start: 20070209, end: 20070318
  7. LOXONIN [Concomitant]
     Route: 048
     Dates: start: 20070319, end: 20070611
  8. MUCOSTA [Concomitant]
     Indication: PROPHYLAXIS AGAINST GASTROINTESTINAL ULCER
     Route: 048
     Dates: start: 20070209, end: 20070313
  9. AMLODIPINE [Concomitant]
     Indication: HYPERTENSION
     Route: 048
     Dates: start: 20070417, end: 20070417
  10. AMLODIPINE [Concomitant]
     Route: 048
     Dates: start: 20070418, end: 20070608
  11. AMLODIPINE [Concomitant]
     Route: 048
     Dates: start: 20070609, end: 20070623
  12. CANDESARTAN CILEXETIL [Concomitant]
     Indication: HYPERTENSION
     Route: 048
     Dates: start: 20070220, end: 20070423
  13. MAGNESIUM OXIDE [Concomitant]
     Indication: CONSTIPATION
     Route: 048
     Dates: start: 20070209, end: 20070713
  14. IDOMETHINE [Concomitant]
     Indication: MYALGIA
     Route: 065
     Dates: start: 20070209, end: 20070723
  15. IDOMETHINE [Concomitant]
     Indication: ARTHRALGIA
     Route: 065
     Dates: start: 20070209, end: 20070723

REACTIONS (4)
  - ARTHRALGIA [None]
  - CONSTIPATION [None]
  - HEPATOCELLULAR DAMAGE [None]
  - MYALGIA [None]
